FAERS Safety Report 22600688 (Version 1)
Quarter: 2023Q2

REPORT INFORMATION
  Report Type: Spontaneous
  Country: US (occurrence: None)
  Receive Date: 20230613
  Receipt Date: 20230613
  Transmission Date: 20230722
  Serious: Yes (Hospitalization)
  Sender: FDA-Public Use
  Company Number: None

PATIENT
  Age: 65 Year
  Sex: Female

DRUGS (1)
  1. LENALIDOMIDE [Suspect]
     Active Substance: LENALIDOMIDE
     Indication: Plasma cell myeloma
     Dosage: FREQUENCY : DAILY;?
     Route: 048
     Dates: start: 202204

REACTIONS (8)
  - Neutropenia [None]
  - Human metapneumovirus test positive [None]
  - Cough [None]
  - Diarrhoea [None]
  - Gastroenteritis Escherichia coli [None]
  - Sapovirus test positive [None]
  - Clostridium test positive [None]
  - Therapy interrupted [None]

NARRATIVE: CASE EVENT DATE: 20230510
